FAERS Safety Report 4716599-1 (Version None)
Quarter: 2005Q3

REPORT INFORMATION
  Report Type: 
  Country: None (occurrence: None)
  Receive Date: 20050713
  Receipt Date: 20050701
  Transmission Date: 20060218
  Serious: Yes (Hospitalization)
  Sender: FDA-Public Use
  Company Number: SUS1-2005-00537

PATIENT
  Age: 33 Year
  Sex: Male

DRUGS (4)
  1. PENTASA [Suspect]
     Indication: CROHN'S DISEASE
     Dosage: 1500 MG DAILY, ORAL
     Route: 048
  2. OMEPRAZOLE [Concomitant]
  3. SOLDIUM CITRATE (SODIUM CITRATE) [Concomitant]
  4. LORNOXICAM (LORNOXICAM) [Concomitant]

REACTIONS (4)
  - BETA-N-ACETYL-D-GLUCOSAMINIDASE INCREASED [None]
  - MYOGLOBIN URINE PRESENT [None]
  - RENAL IMPAIRMENT [None]
  - URINE ANALYSIS ABNORMAL [None]
